FAERS Safety Report 24875292 (Version 1)
Quarter: 2025Q1

REPORT INFORMATION
  Report Type: Report from Study
  Country: US (occurrence: US)
  Receive Date: 20250122
  Receipt Date: 20250122
  Transmission Date: 20250409
  Serious: Yes (Hospitalization)
  Sender: ALNYLAM PHARMACEUTICALS
  Company Number: US-ALNYLAM PHARMACEUTICALS, INC.-ALN-2025-000349

PATIENT

DRUGS (2)
  1. OXLUMO [Suspect]
     Active Substance: LUMASIRAN
     Indication: Product used for unknown indication
     Route: 058
     Dates: start: 20240127, end: 20240127
  2. OXLUMO [Suspect]
     Active Substance: LUMASIRAN
     Dosage: 3 MILLIGRAM/KILOGRAM, Q3M
     Route: 058

REACTIONS (1)
  - Stent placement [Unknown]

NARRATIVE: CASE EVENT DATE: 20250115
